FAERS Safety Report 8351471-X (Version None)
Quarter: 2012Q2

REPORT INFORMATION
  Report Type: 
  Country: None (occurrence: None)
  Receive Date: 20120510
  Receipt Date: 20120504
  Transmission Date: 20120825
  Serious: Yes (Other)
  Sender: FDA-Public Use
  Company Number: US-TEVA-336917USA

PATIENT
  Sex: Female

DRUGS (1)
  1. LOSEASONIQUE [Suspect]
     Indication: ORAL CONTRACEPTION
     Route: 048

REACTIONS (1)
  - TOXICITY TO VARIOUS AGENTS [None]
